FAERS Safety Report 6385605-3 (Version None)
Quarter: 2009Q4

REPORT INFORMATION
  Report Type: 
  Country: None (occurrence: None)
  Receive Date: 20091002
  Receipt Date: 20081211
  Transmission Date: 20100525
  Serious: No
  Sender: FDA-Public Use
  Company Number: US-ASTRAZENECA-2008UW22366

PATIENT
  Age: 67 Year
  Sex: Female
  Weight: 81.6 kg

DRUGS (14)
  1. ARIMIDEX [Suspect]
     Indication: BREAST CANCER
     Route: 048
  2. GABAPENTIN [Concomitant]
  3. KLOR-CON [Concomitant]
  4. GLUCOPHAGE [Concomitant]
  5. BENICAR [Concomitant]
  6. ZOCOR [Concomitant]
  7. HYDROCHLOROTHIAZIDE [Concomitant]
  8. NORVASC [Concomitant]
  9. CLONIPINE [Concomitant]
  10. AMBIEN [Concomitant]
  11. METHADONE [Concomitant]
  12. VITAMIN D [Concomitant]
  13. ASPIRIN [Concomitant]
  14. STOOL SOFTENER [Concomitant]

REACTIONS (1)
  - FALL [None]
